FAERS Safety Report 9278139 (Version 1)
Quarter: 2013Q2

REPORT INFORMATION
  Report Type: Spontaneous
  Country: US (occurrence: US)
  Receive Date: 20130508
  Receipt Date: 20130508
  Transmission Date: 20140414
  Serious: Yes (Hospitalization)
  Sender: FDA-Public Use
  Company Number: US-ASTELLAS-2013US004792

PATIENT
  Sex: Female
  Weight: 97 kg

DRUGS (18)
  1. VESICARE [Suspect]
     Indication: URGE INCONTINENCE
     Dosage: 5 MG, UID/QD
     Route: 048
  2. SINEQUAN [Concomitant]
     Indication: NEUROPATHY PERIPHERAL
     Dosage: 50 MG, UID/QD
     Route: 048
  3. FLUOXETINE [Concomitant]
     Indication: ANXIETY
     Dosage: 10 MG, UID/QD
     Route: 048
  4. K-DUR [Concomitant]
     Indication: HYPOKALAEMIA
     Dosage: 10 MG, UID/QD
     Route: 048
  5. BENTYL [Concomitant]
     Indication: IRRITABLE BOWEL SYNDROME
     Dosage: 10 MG, QID
     Route: 048
  6. MICROZIDE                          /00022001/ [Concomitant]
     Indication: BLOOD PRESSURE INCREASED
     Dosage: 50-70 MG, UID/QD
     Route: 048
  7. LISINOPRIL [Concomitant]
     Indication: BLOOD PRESSURE INCREASED
     Dosage: 20 MG, UID/QD
     Route: 048
  8. ZOCOR [Concomitant]
     Indication: BLOOD CHOLESTEROL INCREASED
     Dosage: 20 MG, UID/QD
     Route: 048
  9. OMEPRAZOLE [Concomitant]
     Indication: GASTROOESOPHAGEAL REFLUX DISEASE
     Dosage: 20 MG, UID/QD
     Route: 048
  10. SINGULAR [Concomitant]
     Indication: CHRONIC OBSTRUCTIVE PULMONARY DISEASE
     Dosage: 10 MG, UID/QD
     Route: 048
  11. ADVAIR [Concomitant]
     Indication: CHRONIC OBSTRUCTIVE PULMONARY DISEASE
     Dosage: 1 PUFF , BID
     Route: 055
  12. PROVENTIL                          /00139501/ [Concomitant]
     Indication: CHRONIC OBSTRUCTIVE PULMONARY DISEASE
     Dosage: 2 PUFFS, QID
     Route: 055
  13. SPIRIVA [Concomitant]
     Indication: CHRONIC OBSTRUCTIVE PULMONARY DISEASE
     Dosage: 18 UG CRUSHED, UID/QD
     Route: 055
  14. NEURONTIN [Concomitant]
     Indication: NERVE INJURY
     Dosage: 800 MG, TID
     Route: 048
  15. LYRICA [Concomitant]
     Indication: NERVE INJURY
     Dosage: 150 MG, BID
     Route: 048
  16. CELEBREX [Concomitant]
     Indication: ARTHRITIS
     Dosage: 200 MG, UID/QD
     Route: 048
  17. ASPIRIN [Concomitant]
     Indication: CARDIAC DISORDER
     Dosage: 81 MG, UID/QD
     Route: 048
  18. COLECALCIFEROL [Concomitant]
     Indication: PRODUCT USED FOR UNKNOWN INDICATION
     Dosage: 1000 IU, UID/QD
     Route: 048

REACTIONS (1)
  - Pneumonia [Unknown]
